FAERS Safety Report 16278195 (Version 2)
Quarter: 2019Q2

REPORT INFORMATION
  Report Type: Spontaneous
  Country: GB (occurrence: GB)
  Receive Date: 20190506
  Receipt Date: 20190607
  Transmission Date: 20190711
  Serious: Yes (Hospitalization)
  Sender: FDA-Public Use
  Company Number: GB-MYLANLABS-2019M1042929

PATIENT
  Age: 73 Year
  Sex: Male

DRUGS (3)
  1. FUSIDIC ACID [Interacting]
     Active Substance: FUSIDIC ACID
     Indication: WOUND INFECTION
     Dosage: UNK
     Dates: start: 201806
  2. FLUCLOXACILLIN [Concomitant]
     Active Substance: FLUCLOXACILLIN
     Indication: WOUND INFECTION
     Dosage: UNK
     Dates: start: 201806
  3. ATORVASTATIN [Suspect]
     Active Substance: ATORVASTATIN
     Indication: PRODUCT USED FOR UNKNOWN INDICATION
     Dosage: 80 MILLIGRAM

REACTIONS (4)
  - Myalgia [Unknown]
  - Rhabdomyolysis [Unknown]
  - Labelled drug-drug interaction medication error [Unknown]
  - Chromaturia [Unknown]
